FAERS Safety Report 25358496 (Version 1)
Quarter: 2025Q2

REPORT INFORMATION
  Report Type: Report from Study
  Country: US (occurrence: US)
  Receive Date: 20250526
  Receipt Date: 20250526
  Transmission Date: 20250717
  Serious: No
  Sender: MALLINCKRODT
  Company Number: US-MALLINCKRODT-MNK202502682

PATIENT
  Age: 68 Year
  Sex: Male

DRUGS (4)
  1. CORTICOTROPIN [Suspect]
     Active Substance: CORTICOTROPIN
     Indication: Iridocyclitis
  2. REPATHA [Concomitant]
     Active Substance: EVOLOCUMAB
  3. HUMIRA [Concomitant]
     Active Substance: ADALIMUMAB
  4. OZEMPIC [Concomitant]
     Active Substance: SEMAGLUTIDE

REACTIONS (3)
  - Contusion [Unknown]
  - Injection site mass [Unknown]
  - Injection site discolouration [Not Recovered/Not Resolved]
